FAERS Safety Report 23633949 (Version 1)
Quarter: 2024Q1

REPORT INFORMATION
  Report Type: Spontaneous
  Country: JP (occurrence: JP)
  Receive Date: 20240314
  Receipt Date: 20240314
  Transmission Date: 20240410
  Serious: No
  Sender: FDA-Public Use
  Company Number: JP-MSD-M2024-09111

PATIENT
  Sex: Female

DRUGS (1)
  1. LAGEVRIO [Suspect]
     Active Substance: MOLNUPIRAVIR
     Indication: COVID-19 treatment
     Dosage: 600 MILLIGRAM, ONCE
     Route: 048
     Dates: start: 20240307

REACTIONS (4)
  - Sensation of foreign body [Unknown]
  - Conversion disorder [Unknown]
  - Underdose [Unknown]
  - Product use complaint [Unknown]

NARRATIVE: CASE EVENT DATE: 20240307
